FAERS Safety Report 10418546 (Version 1)
Quarter: 2014Q3

REPORT INFORMATION
  Report Type: Spontaneous
  Country: US (occurrence: None)
  Receive Date: 20140828
  Receipt Date: 20140828
  Transmission Date: 20150326
  Serious: Yes (Hospitalization, Disabling, Congenital Anomaly)
  Sender: FDA-Public Use
  Company Number: None

PATIENT
  Age: 24 Year
  Sex: Male
  Weight: 70.31 kg

DRUGS (1)
  1. DESMOPRESSIN [Suspect]
     Active Substance: DESMOPRESSIN
     Indication: DIABETES INSIPIDUS
     Dosage: 2 SPRAYS A.M., 1 SPARY P.M. NASAL
     Route: 045
     Dates: start: 20110510, end: 20140827

REACTIONS (7)
  - Fatigue [None]
  - Dizziness [None]
  - Amnesia [None]
  - Feeling abnormal [None]
  - Temperature intolerance [None]
  - Dyspnoea exertional [None]
  - Blindness transient [None]
